FAERS Safety Report 23042574 (Version 2)
Quarter: 2023Q4

REPORT INFORMATION
  Report Type: Report from Study
  Country: US (occurrence: US)
  Receive Date: 20231009
  Receipt Date: 20231010
  Transmission Date: 20240110
  Serious: Yes (Hospitalization, Other)
  Sender: FDA-Public Use
  Company Number: US-ABBVIE-5438312

PATIENT
  Sex: Female

DRUGS (1)
  1. HUMIRA [Suspect]
     Active Substance: ADALIMUMAB
     Indication: Crohn^s disease
     Route: 058
     Dates: start: 20190807

REACTIONS (8)
  - Seizure [Not Recovered/Not Resolved]
  - Vitamin B12 decreased [Unknown]
  - Carpal tunnel syndrome [Unknown]
  - Bone disorder [Unknown]
  - Cerebral disorder [Unknown]
  - Neurological symptom [Unknown]
  - Dysphagia [Unknown]
  - Memory impairment [Unknown]

NARRATIVE: CASE EVENT DATE: 20230101
